FAERS Safety Report 4988372-0 (Version None)
Quarter: 2006Q2

REPORT INFORMATION
  Report Type: 
  Country: None (occurrence: None)
  Receive Date: 20060502
  Receipt Date: 20060424
  Transmission Date: 20061013
  Serious: Yes (Hospitalization)
  Sender: FDA-Public Use
  Company Number: US-JNJFOC-20060405914

PATIENT
  Sex: Female
  Weight: 68.04 kg

DRUGS (16)
  1. DURAGESIC-100 [Suspect]
     Route: 062
  2. ACTOS [Concomitant]
     Route: 048
  3. AROMASIN [Concomitant]
     Indication: CHEMOTHERAPY
     Route: 048
  4. BONIVA [Concomitant]
     Route: 048
  5. DIAZEPAM [Concomitant]
     Route: 048
  6. NORCO [Concomitant]
     Route: 048
  7. NORCO [Concomitant]
     Indication: BREAKTHROUGH PAIN
     Dosage: 10 MG HYDROCODONE BITARTRATE/325 MG ACETAMINOPHEN,  1 TO 2 TABLETS 3 TIMES DAILY AS NEEDED, ORAL
     Route: 048
  8. NIASPAN [Concomitant]
     Route: 048
  9. ECOTRIN [Concomitant]
     Route: 048
  10. REGLAN [Concomitant]
     Indication: GASTROINTESTINAL DISORDER
     Route: 048
  11. PROTONIX [Concomitant]
     Indication: GASTROINTESTINAL DISORDER
     Route: 048
  12. TRICOR [Concomitant]
     Route: 048
  13. BENTYL [Concomitant]
     Indication: GASTROINTESTINAL DISORDER
     Route: 048
  14. CARAFATE [Concomitant]
     Indication: GASTROINTESTINAL DISORDER
     Route: 048
  15. ZELNORM [Concomitant]
     Indication: GASTROINTESTINAL DISORDER
     Route: 048
  16. WELLBUTRIN [Concomitant]
     Indication: DEPRESSION
     Route: 048

REACTIONS (4)
  - HYPERHIDROSIS [None]
  - PANCREATITIS [None]
  - PNEUMONIA [None]
  - PULMONARY EMBOLISM [None]
